FAERS Safety Report 7177823-1 (Version None)
Quarter: 2010Q4

REPORT INFORMATION
  Report Type: 
  Country: None (occurrence: None)
  Receive Date: 20101208
  Receipt Date: 20101122
  Transmission Date: 20110411
  Serious: Yes (Hospitalization)
  Sender: FDA-Public Use
  Company Number: 2010P1002846

PATIENT
  Age: 74 Year
  Sex: Female

DRUGS (1)
  1. WARFARIN (NO PREF. NAME) [Suspect]

REACTIONS (19)
  - ACQUIRED OESOPHAGEAL WEB [None]
  - ACTIVATED PARTIAL THROMBOPLASTIN TIME PROLONGED [None]
  - AORTIC CALCIFICATION [None]
  - AZOTAEMIA [None]
  - BLOOD TRIGLYCERIDES INCREASED [None]
  - CEREBRAL ARTERY EMBOLISM [None]
  - COAGULOPATHY [None]
  - CYSTITIS [None]
  - DYSPHAGIA [None]
  - FAT EMBOLISM [None]
  - GASTROINTESTINAL HAEMORRHAGE [None]
  - HAEMORRHOIDS [None]
  - INTERNATIONAL NORMALISED RATIO INCREASED [None]
  - LACUNAR INFARCTION [None]
  - LOW DENSITY LIPOPROTEIN INCREASED [None]
  - NEPHROLITHIASIS [None]
  - PRESBYOESOPHAGUS [None]
  - RENAL ATROPHY [None]
  - TRANSIENT ISCHAEMIC ATTACK [None]
